FAERS Safety Report 8379602-6 (Version None)
Quarter: 2012Q2

REPORT INFORMATION
  Report Type: 
  Country: None (occurrence: None)
  Receive Date: 20120523
  Receipt Date: 20120514
  Transmission Date: 20120825
  Serious: Yes (Hospitalization)
  Sender: FDA-Public Use
  Company Number: US-ASTRAZENECA-2012SE16873

PATIENT
  Age: 62 Year
  Sex: Male

DRUGS (19)
  1. TRAZODONE HCL [Concomitant]
     Route: 048
  2. DULCOLAX [Concomitant]
  3. LORTAB [Concomitant]
     Route: 048
  4. PLAVIX [Concomitant]
     Route: 048
  5. BACTRIM DS [Concomitant]
     Dosage: TWO TIMES A DAY
     Route: 048
  6. ASPIRIN [Concomitant]
  7. ALBUTEROL [Concomitant]
  8. ALOE LIQUID GEL [Concomitant]
     Dosage: 200
     Route: 048
  9. NASAL SPRAY [Concomitant]
  10. PAIN MEDICATION [Concomitant]
  11. NEXIUM [Suspect]
     Route: 048
  12. CLONAZEPAM [Concomitant]
     Route: 048
  13. METOPROLOL TARTRATE [Concomitant]
     Route: 048
  14. SPIRIVA [Concomitant]
  15. ALPRAZOLAM [Concomitant]
     Route: 048
  16. CELEBREX [Concomitant]
     Route: 048
  17. LYRICA [Concomitant]
     Route: 048
  18. PROTONIX [Concomitant]
     Route: 048
  19. OXYCODONE HCL AND ACETAMINOPHEN [Concomitant]
     Dosage: 7.5/325 MG, 1-2 TABS AS REQUIRED
     Route: 048

REACTIONS (14)
  - CHEST PAIN [None]
  - CORONARY ARTERY DISEASE [None]
  - DIZZINESS [None]
  - PALPITATIONS [None]
  - CHRONIC OBSTRUCTIVE PULMONARY DISEASE [None]
  - PYREXIA [None]
  - HYPERHIDROSIS [None]
  - CHEST DISCOMFORT [None]
  - DYSPNOEA [None]
  - ASTHENIA [None]
  - OEDEMA [None]
  - DYSPEPSIA [None]
  - VOMITING [None]
  - PNEUMOTHORAX [None]
